FAERS Safety Report 10258226 (Version 1)
Quarter: 2014Q2

REPORT INFORMATION
  Report Type: Spontaneous
  Country: US (occurrence: None)
  Receive Date: 20140623
  Receipt Date: 20140623
  Transmission Date: 20141212
  Serious: No
  Sender: FDA-Public Use
  Company Number: None

PATIENT
  Age: 77 Year
  Sex: Female
  Weight: 83.6 kg

DRUGS (1)
  1. LEVAQUIN [Suspect]
     Indication: ANTIBIOTIC THERAPY
     Dosage: 750 MG EVERY 48 HRS  INTRAVENOUS
     Route: 042
     Dates: start: 20140620, end: 20140620

REACTIONS (4)
  - Infusion site erythema [None]
  - Infusion site pain [None]
  - Infusion site pruritus [None]
  - Infusion related reaction [None]
